FAERS Safety Report 16440007 (Version 1)
Quarter: 2019Q3

REPORT INFORMATION
  Report Type: Spontaneous
  Country: US (occurrence: US)
  Receive Date: 20190616
  Receipt Date: 20190616
  Transmission Date: 20191004
  Serious: Yes (Other)
  Sender: FDA-Public Use
  Company Number: None

PATIENT
  Age: 66 Year
  Sex: Female
  Weight: .07 kg

DRUGS (5)
  1. MULTIVITAMIN [Concomitant]
     Active Substance: VITAMINS
  2. BLISTEX FIVE STAR LIP PROTECTION BROAD SPECTRUM [Suspect]
     Active Substance: AVOBENZONE\DIMETHICONE\HOMOSALATE\OCTINOXATE\OCTISALATE\OCTOCRYLENE\OXYBENZONE
     Indication: SUNBURN
     Dosage: ?          QUANTITY:1 1;?
     Route: 061
     Dates: start: 20190605, end: 20190608
  3. CURCUMIN [Concomitant]
     Active Substance: CURCUMIN
  4. LISINOPRIL. [Concomitant]
     Active Substance: LISINOPRIL
  5. CALCIUM [Concomitant]
     Active Substance: CALCIUM

REACTIONS (4)
  - Lip swelling [None]
  - Oral discomfort [None]
  - Drug hypersensitivity [None]
  - Cheilitis [None]

NARRATIVE: CASE EVENT DATE: 20190610
